FAERS Safety Report 14663916 (Version 1)
Quarter: 2018Q1

REPORT INFORMATION
  Report Type: Spontaneous
  Country: US (occurrence: US)
  Receive Date: 20180321
  Receipt Date: 20180321
  Transmission Date: 20180509
  Serious: Yes (Other)
  Sender: FDA-Public Use
  Company Number: US-ROCHE-2089065

PATIENT
  Sex: Male
  Weight: 122.58 kg

DRUGS (4)
  1. INSULIN [Concomitant]
     Active Substance: INSULIN NOS
     Indication: DIABETES MELLITUS
     Dosage: ONGOING
     Route: 065
  2. AVAPRO [Concomitant]
     Active Substance: IRBESARTAN
     Dosage: MORNING
     Route: 065
  3. AVASTIN [Suspect]
     Active Substance: BEVACIZUMAB
     Indication: COLON CANCER STAGE IV
     Route: 065
     Dates: start: 201702
  4. NORVASC [Concomitant]
     Active Substance: AMLODIPINE BESYLATE
     Dosage: AT NIGHT ;ONGOING
     Route: 065

REACTIONS (3)
  - Renal injury [Unknown]
  - Protein total increased [Not Recovered/Not Resolved]
  - Blood pressure increased [Recovered/Resolved]
